FAERS Safety Report 19205273 (Version 1)
Quarter: 2021Q2

REPORT INFORMATION
  Report Type: Spontaneous
  Country: US (occurrence: US)
  Receive Date: 20210501
  Receipt Date: 20210501
  Transmission Date: 20210717
  Serious: No
  Sender: FDA-Public Use
  Company Number: None

PATIENT
  Age: 73 Year
  Sex: Male
  Weight: 71.1 kg

DRUGS (23)
  1. SYMBICORT [Concomitant]
     Active Substance: BUDESONIDE\FORMOTEROL FUMARATE DIHYDRATE
  2. ESTER?C [Concomitant]
  3. LOSARTAN. [Concomitant]
     Active Substance: LOSARTAN
  4. MISOPROSTOL. [Concomitant]
     Active Substance: MISOPROSTOL
  5. CIALIS [Concomitant]
     Active Substance: TADALAFIL
  6. VIAGRA [Concomitant]
     Active Substance: SILDENAFIL CITRATE
  7. MULTIVITAMIN + MINERAL [Concomitant]
     Active Substance: MINERALS\VITAMINS
  8. VITAMIN D3 [Concomitant]
     Active Substance: CHOLECALCIFEROL
  9. CALCIUM [Concomitant]
     Active Substance: CALCIUM
  10. VITAMIN B COMPLEX [Concomitant]
     Active Substance: CYANOCOBALAMIN\DEXPANTHENOL\NIACINAMIDE\PYRIDOXINE HYDROCHLORIDE\RIBOFLAVIN 5^-PHOSPHATE SODIUM\THIAMINE HYDROCHLORIDE\VITAMIN B COMPLEX
  11. MAGNESIUM [Concomitant]
     Active Substance: MAGNESIUM
  12. COENZYME Q10 [Concomitant]
     Active Substance: DIETARY SUPPLEMENT\UBIDECARENONE
  13. ALFUZOSIN ER [Concomitant]
     Active Substance: ALFUZOSIN
  14. SINGULAIR [Concomitant]
     Active Substance: MONTELUKAST SODIUM
  15. ZINC. [Concomitant]
     Active Substance: ZINC
  16. IBUPROFEN. [Concomitant]
     Active Substance: IBUPROFEN
  17. VALACYCLOVIR [Concomitant]
     Active Substance: VALACYCLOVIR HYDROCHLORIDE
  18. VITAMIN E [Concomitant]
     Active Substance: .ALPHA.-TOCOPHEROL
  19. ZOLPIDEM [Suspect]
     Active Substance: ZOLPIDEM TARTRATE
     Indication: INSOMNIA
     Dosage: ?          QUANTITY:1 TABLET(S);?
     Route: 048
     Dates: start: 20210430, end: 20210501
  20. AMLODIPINE BESYLATE. [Concomitant]
     Active Substance: AMLODIPINE BESYLATE
  21. JUBLIA [Concomitant]
     Active Substance: EFINACONAZOLE
  22. VITAMIN K2 [Concomitant]
     Active Substance: MENAQUINONE 6
  23. POTASSIUM [Concomitant]
     Active Substance: POTASSIUM

REACTIONS (7)
  - Product substitution issue [None]
  - Nausea [None]
  - Feeling abnormal [None]
  - Dizziness [None]
  - Drug ineffective [None]
  - Product formulation issue [None]
  - Fatigue [None]

NARRATIVE: CASE EVENT DATE: 20210501
